FAERS Safety Report 9374931 (Version 1)
Quarter: 2013Q2

REPORT INFORMATION
  Report Type: Spontaneous
  Country: US (occurrence: US)
  Receive Date: 20130628
  Receipt Date: 20130628
  Transmission Date: 20140414
  Serious: Yes (Hospitalization)
  Sender: FDA-Public Use
  Company Number: US-CELGENEUS-163-21880-13063298

PATIENT
  Age: 60 Year
  Sex: Female
  Weight: 78.3 kg

DRUGS (9)
  1. REVLIMID [Suspect]
     Indication: PLASMA CELL MYELOMA
     Route: 065
     Dates: end: 20130524
  2. DEXAMETHASONE [Suspect]
     Indication: PLASMA CELL MYELOMA
     Route: 065
     Dates: end: 20130524
  3. ACY-1215 [Suspect]
     Indication: PLASMA CELL MYELOMA
     Route: 065
     Dates: end: 20130524
  4. ACYCLOVIR [Concomitant]
     Indication: ANTIVIRAL PROPHYLAXIS
     Route: 065
  5. ACETAMINOPHEN [Concomitant]
     Indication: PAIN
     Route: 065
  6. PREMARIN [Concomitant]
     Indication: MENOPAUSE
     Route: 065
  7. DOCUSATE [Concomitant]
     Indication: CONSTIPATION
  8. ENOXAPARIN [Concomitant]
     Indication: ANTICOAGULANT THERAPY
     Route: 065
  9. FENTANYL [Concomitant]
     Indication: PRODUCT USED FOR UNKNOWN INDICATION
     Route: 065

REACTIONS (4)
  - Hypercalcaemia [Recovered/Resolved]
  - Hyponatraemia [Recovered/Resolved]
  - Renal failure acute [Recovered/Resolved]
  - Anaemia [Recovered/Resolved]
